FAERS Safety Report 4866766-1 (Version None)
Quarter: 2005Q4

REPORT INFORMATION
  Report Type: 
  Country: None (occurrence: None)
  Receive Date: 20051221
  Receipt Date: 20051208
  Transmission Date: 20060501
  Serious: Yes (Hospitalization)
  Sender: FDA-Public Use
  Company Number: 2005167758

PATIENT
  Age: 14 Year
  Sex: Male

DRUGS (2)
  1. GENOTROPIN [Suspect]
     Indication: GROWTH HORMONE DEFICIENCY
     Dosage: 0.6 MG DAILY SUBCUTANEOUS
     Route: 058
     Dates: start: 20030826
  2. ERYTHROMYCIN [Concomitant]

REACTIONS (1)
  - LYMPHOMA [None]
